FAERS Safety Report 15049686 (Version 1)
Quarter: 2018Q2

REPORT INFORMATION
  Report Type: Spontaneous
  Country: US (occurrence: US)
  Receive Date: 20180622
  Receipt Date: 20180622
  Transmission Date: 20180711
  Serious: No
  Sender: FDA-Public Use
  Company Number: US-ADAMAS PHARMA, LLC-2018ADA00369

PATIENT
  Age: 58 Year
  Sex: Female
  Weight: 48.73 kg

DRUGS (13)
  1. ZOLOFT [Concomitant]
     Active Substance: SERTRALINE HYDROCHLORIDE
  2. GOCOVRI [Suspect]
     Active Substance: AMANTADINE
     Dosage: 274 MG, 1X/DAY AT BEDTIME
  3. CELEBREX [Concomitant]
     Active Substance: CELECOXIB
  4. RESERVATROL [Concomitant]
  5. GOCOVRI [Suspect]
     Active Substance: AMANTADINE
     Indication: DYSKINESIA
     Dosage: 137 MG, 1X/DAY
     Route: 048
     Dates: start: 201801, end: 2018
  6. GOCOVRI [Suspect]
     Active Substance: AMANTADINE
     Dosage: 274 MG, 1X/DAY
     Route: 048
     Dates: start: 2018
  7. TRAZODONE [Concomitant]
     Active Substance: TRAZODONE HYDROCHLORIDE
  8. RYTARY [Concomitant]
     Active Substance: CARBIDOPA\LEVODOPA
  9. VITAMIN D [Concomitant]
     Active Substance: CHOLECALCIFEROL
  10. UNSPECIFIED SUPPLEMENT [Concomitant]
  11. UNSPECIFIED PROBIOTIC [Concomitant]
  12. GOCOVRI [Suspect]
     Active Substance: AMANTADINE
     Dosage: 137 MG, 1X/DAY
     Dates: start: 20180411
  13. EXEMESTANE. [Concomitant]
     Active Substance: EXEMESTANE

REACTIONS (5)
  - Skin warm [Unknown]
  - Erythema [Unknown]
  - Skin discolouration [Recovering/Resolving]
  - Oedema peripheral [Recovering/Resolving]
  - Peripheral swelling [Recovering/Resolving]

NARRATIVE: CASE EVENT DATE: 201803
